FAERS Safety Report 10513662 (Version 2)
Quarter: 2014Q4

REPORT INFORMATION
  Report Type: Report from Study
  Country: CO (occurrence: CO)
  Receive Date: 20141013
  Receipt Date: 20141013
  Transmission Date: 20150528
  Serious: Yes (Death, Life-Threatening, Hospitalization)
  Sender: FDA-Public Use
  Company Number: CO-SA-2014SA134819

PATIENT
  Age: 12 Month
  Sex: Male
  Weight: 4 kg

DRUGS (1)
  1. CEREZYME [Suspect]
     Active Substance: IMIGLUCERASE
     Indication: GAUCHER^S DISEASE
     Dosage: 1 VIAL EVERY TWO WEEKS
     Route: 041

REACTIONS (3)
  - Dyspnoea [Not Recovered/Not Resolved]
  - Respiratory arrest [Fatal]
  - Respiratory distress [Fatal]

NARRATIVE: CASE EVENT DATE: 201409
